FAERS Safety Report 7102033-3 (Version None)
Quarter: 2010Q4

REPORT INFORMATION
  Report Type: 
  Country: None (occurrence: None)
  Receive Date: 20101115
  Receipt Date: 20101109
  Transmission Date: 20110411
  Serious: Yes (Other)
  Sender: FDA-Public Use
  Company Number: US-BAXTER-2010BH027888

PATIENT

DRUGS (4)
  1. IFOSFAMIDE [Suspect]
     Indication: SARCOMA
     Route: 065
  2. MESNA [Suspect]
     Indication: SARCOMA
     Route: 065
  3. DOXORUBICIN HCL [Suspect]
     Indication: SARCOMA
     Route: 065
  4. DACARBAZINE [Suspect]
     Indication: SARCOMA
     Route: 065

REACTIONS (3)
  - INFECTION [None]
  - LEUKOPENIA [None]
  - SEPSIS [None]
